FAERS Safety Report 9786269 (Version 1)
Quarter: 2013Q4

REPORT INFORMATION
  Report Type: Spontaneous
  Country: FR (occurrence: FR)
  Receive Date: 20131227
  Receipt Date: 20131227
  Transmission Date: 20140711
  Serious: Yes (Disabling)
  Sender: FDA-Public Use
  Company Number: FR-UCBSA-106753

PATIENT
  Age: 27 Year
  Sex: Female

DRUGS (1)
  1. CIMZIA [Suspect]
     Dosage: STARTED IN IN DEC-2011 OR JAN-2012; 200 MG SOULTION FOR INJECTION
     Route: 058
     Dates: end: 201303

REACTIONS (1)
  - Psoriasis [Recovering/Resolving]
